FAERS Safety Report 7890024-4 (Version None)
Quarter: 2011Q4

REPORT INFORMATION
  Report Type: 
  Country: None (occurrence: None)
  Receive Date: 20111103
  Receipt Date: 20111027
  Transmission Date: 20120403
  Serious: Yes (Hospitalization)
  Sender: FDA-Public Use
  Company Number: PHEH2011US08009

PATIENT
  Sex: Female

DRUGS (7)
  1. LORAZEPAM [Concomitant]
     Dosage: 0.5 MG, PRN
  2. DIOVAN [Suspect]
     Dosage: 320 MG, QD
  3. METFORMIN HCL [Concomitant]
     Dosage: 1000 MG, BID
  4. HYDROCHLOROTHIAZIDE [Suspect]
     Dosage: 25 MG, QD
  5. GLIMEPIRIDE [Concomitant]
     Dosage: 2 MG, QD
  6. SIMVASTATIN [Concomitant]
     Dosage: 40 MG, QD
  7. ATENOLOL [Suspect]
     Dosage: 25 MG, QD

REACTIONS (4)
  - PANIC ATTACK [None]
  - PALPITATIONS [None]
  - DRUG INEFFECTIVE [None]
  - MYOCARDIAL INFARCTION [None]
